FAERS Safety Report 19801547 (Version 3)
Quarter: 2022Q4

REPORT INFORMATION
  Report Type: Spontaneous
  Country: US (occurrence: US)
  Receive Date: 20210908
  Receipt Date: 20221107
  Transmission Date: 20230113
  Serious: Yes (Other)
  Sender: FDA-Public Use
  Company Number: US-NOVARTISTESTPH-NVSC2021US197577

PATIENT
  Sex: Male

DRUGS (1)
  1. TABRECTA [Suspect]
     Active Substance: CAPMATINIB
     Indication: Non-small cell lung cancer stage IV
     Dosage: 450 MG, QD (THREE PILLS PER DAY)
     Route: 065

REACTIONS (4)
  - Metastases to central nervous system [Unknown]
  - Scan abnormal [Unknown]
  - Product communication issue [Unknown]
  - Off label use [Unknown]
